FAERS Safety Report 5454544-4 (Version None)
Quarter: 2007Q3

REPORT INFORMATION
  Report Type: 
  Country: None (occurrence: None)
  Receive Date: 20070917
  Receipt Date: 20061023
  Transmission Date: 20080115
  Serious: No
  Sender: FDA-Public Use
  Company Number: US-ASTRAZENECA-2006UW16523

PATIENT
  Age: 25 Year
  Sex: Female
  Weight: 83.2 kg

DRUGS (5)
  1. SEROQUEL [Suspect]
     Route: 048
  2. RISPERDAL [Suspect]
     Indication: BIPOLAR DISORDER
     Route: 048
     Dates: start: 20060105
  3. RISPERDAL [Suspect]
     Dosage: 75 MG/50 MG/25 MG
     Route: 048
     Dates: start: 20060706, end: 20060817
  4. CELEXA [Concomitant]
     Indication: DEPRESSION
     Route: 048
     Dates: start: 20050105, end: 20060817
  5. KLONOPIN [Concomitant]
     Indication: ANXIETY
     Dosage: 0.5 MG BID
     Dates: start: 20060706

REACTIONS (1)
  - TIC [None]
